FAERS Safety Report 4921390-7 (Version None)
Quarter: 2006Q1

REPORT INFORMATION
  Report Type: 
  Country: None (occurrence: None)
  Receive Date: 20060224
  Receipt Date: 20060117
  Transmission Date: 20060701
  Serious: Yes (Hospitalization, Other)
  Sender: FDA-Public Use
  Company Number: 2006SE00357

PATIENT
  Age: 12823 Day
  Sex: Male

DRUGS (6)
  1. QUETIAPINE [Suspect]
     Dosage: TITRATED TO 400 MG ON 05-MAR-2005.
     Route: 048
     Dates: start: 20050302, end: 20050317
  2. QUETIAPINE [Suspect]
     Route: 048
     Dates: start: 20050318
  3. QUETIAPINE [Suspect]
     Route: 048
     Dates: start: 20050922
  4. QUETIAPINE [Suspect]
     Route: 048
     Dates: start: 20060105
  5. QUETIAPINE [Suspect]
     Route: 048
     Dates: start: 20060109
  6. QUETIAPINE [Suspect]
     Route: 048
     Dates: start: 20060110

REACTIONS (4)
  - ALCOHOL POISONING [None]
  - DRUG EFFECT DECREASED [None]
  - DRUG TOXICITY [None]
  - INCORRECT DOSE ADMINISTERED [None]
